FAERS Safety Report 17591209 (Version 1)
Quarter: 2020Q1

REPORT INFORMATION
  Report Type: Spontaneous
  Country: DE (occurrence: DE)
  Receive Date: 20200327
  Receipt Date: 20200327
  Transmission Date: 20200409
  Serious: Yes (Hospitalization)
  Sender: FDA-Public Use
  Company Number: DE-PFIZER INC-2020128788

PATIENT
  Age: 77 Year
  Sex: Male
  Weight: 70 kg

DRUGS (5)
  1. ATORVASTATIN [Concomitant]
     Active Substance: ATORVASTATIN
     Dosage: 40 MG, 1X/DAY
     Dates: start: 2017
  2. LANTAREL [Suspect]
     Active Substance: METHOTREXATE SODIUM
     Indication: RHEUMATIC DISORDER
     Dosage: 15 MG, WEEKLY
     Dates: start: 201909, end: 201912
  3. EZETROL [Concomitant]
     Active Substance: EZETIMIBE
     Dosage: 10 MG, 1X/DAY
     Dates: start: 2017
  4. ASS DEXCEL PROTECT [Concomitant]
     Dosage: 100 MG, 1X/DAY
     Dates: start: 2017
  5. URBASON [Suspect]
     Active Substance: METHYLPREDNISOLONE
     Indication: RHEUMATIC DISORDER
     Dosage: 40 MG, UNK
     Dates: start: 201909

REACTIONS (3)
  - Asthenia [Recovering/Resolving]
  - Tremor [Recovering/Resolving]
  - Pneumonitis [Recovering/Resolving]

NARRATIVE: CASE EVENT DATE: 201912
